FAERS Safety Report 17889827 (Version 6)
Quarter: 2021Q3

REPORT INFORMATION
  Report Type: Other
  Country: US (occurrence: US)
  Receive Date: 20200612
  Receipt Date: 20210813
  Transmission Date: 20211014
  Serious: Yes (Other)
  Sender: FDA-Public Use
  Company Number: US-ROCHE-2619940

PATIENT
  Sex: Male

DRUGS (28)
  1. ACTEMRA [Suspect]
     Active Substance: TOCILIZUMAB
  2. ACTEMRA [Suspect]
     Active Substance: TOCILIZUMAB
  3. METHOTREXATE. [Concomitant]
     Active Substance: METHOTREXATE
     Dosage: TAKE 8 TABLETS BY MOUTH 3 TIMES DAILY BEFORE MEALS
     Route: 048
  4. PRILOSEC [Concomitant]
     Active Substance: OMEPRAZOLE MAGNESIUM
     Dosage: TAKE 1 TABLET (20MG TOTAL) BY MOUTH DAILY
     Route: 048
  5. ACTEMRA [Suspect]
     Active Substance: TOCILIZUMAB
  6. ZYLOPRIM [Concomitant]
     Active Substance: ALLOPURINOL
     Dosage: ZYLOPRIM
     Route: 048
  7. INFLUENZA VACCINES [Concomitant]
     Active Substance: INFLUENZA VIRUS VACCINE
     Dosage: 9/21/2018, 9/9/2016, 11/06/2015,9/9/2016, 11/06/2015,10/10/2014,9/4/2020, 10/28/2009
  8. TETANUS TOXOID [Concomitant]
     Active Substance: TETANUS TOXOIDS
     Dosage: 1/6/2006
  9. ACTEMRA [Suspect]
     Active Substance: TOCILIZUMAB
  10. HYZAAR [Concomitant]
     Active Substance: HYDROCHLOROTHIAZIDE\LOSARTAN POTASSIUM
     Dosage: TAB TAKE 1 T PO D
     Route: 048
  11. MIRAPEX [Concomitant]
     Active Substance: PRAMIPEXOLE DIHYDROCHLORIDE
     Dosage: 1?2 TABLETS NIGHTLY AS NEEDED
     Route: 048
  12. PROBIOTIC (UNK INGREDIENTS) [Concomitant]
     Dosage: TAKE BY MOUTH ONE TIME DAILY
     Route: 048
  13. TETANUS IMMUNIZATION [Concomitant]
     Dates: start: 20140311
  14. ACTEMRA [Suspect]
     Active Substance: TOCILIZUMAB
     Indication: RHEUMATOID ARTHRITIS
     Dosage: 162MG/0.9ML PFS
     Route: 058
  15. FOLIC ACID. [Concomitant]
     Active Substance: FOLIC ACID
     Dosage: TAKE 1 TABLET BY MOUTH DAILY
     Route: 048
  16. CHOLECALCIFEROL [Concomitant]
     Active Substance: CHOLECALCIFEROL
     Dosage: TAKE 5000 UNITS BY MOUTH DAILY
     Route: 048
  17. MOTRIN [Concomitant]
     Active Substance: IBUPROFEN
     Dosage: TAKE 400MG BY MOUTH TWICE DAILY AS NEEDED
     Route: 048
  18. MULTIVITAMIN IRON [Concomitant]
     Dosage: TAKE 1 TABLET BY MOUTH DAILY
     Route: 048
  19. HEPATITIS A [Concomitant]
     Dates: start: 20060717
  20. INFLUENZA VACCINES [Concomitant]
     Active Substance: INFLUENZA VIRUS VACCINE
     Dates: start: 20180921
  21. ACTEMRA [Suspect]
     Active Substance: TOCILIZUMAB
     Indication: ASTHMA
     Dosage: 162MG/0.9ML
     Route: 058
     Dates: start: 20210219
  22. FISH OIL [Concomitant]
     Active Substance: FISH OIL
     Dosage: TAKE 1000MG BY MOUTH 2 TIMES DAILY
     Route: 048
  23. TETANUS IMMUNOGLOBULIN [Concomitant]
     Active Substance: HUMAN CLOSTRIDIUM TETANI TOXOID IMMUNE GLOBULIN
  24. FLOMAX [Concomitant]
     Active Substance: TAMSULOSIN HYDROCHLORIDE
     Dosage: TAKE 0.4MG BY MOUTH DAILY
     Route: 048
  25. CARBOXYMETHYLCELLULOSE SODIUM. [Concomitant]
     Active Substance: CARBOXYMETHYLCELLULOSE SODIUM
     Dosage: APPLY AS NEEDED
  26. HEPATITIS B VACCINE [Concomitant]
     Active Substance: HEPATITIS B VIRUS VACCINE
  27. PNEUMOCOCCAL VACCINE POLYVALENT NOS [Concomitant]
     Active Substance: PNEUMOCOCCAL VACCINE POLYVALENT
     Dosage: 5/16/2016, 10/19/2006
     Dates: start: 20150814
  28. RITALIN [Concomitant]
     Active Substance: METHYLPHENIDATE HYDROCHLORIDE
     Route: 048

REACTIONS (2)
  - Asthma [Unknown]
  - Dysphonia [Unknown]
